FAERS Safety Report 4882149-2 (Version None)
Quarter: 2006Q1

REPORT INFORMATION
  Report Type: 
  Country: None (occurrence: None)
  Receive Date: 20060117
  Receipt Date: 20051005
  Transmission Date: 20060701
  Serious: Yes (Hospitalization, Other)
  Sender: FDA-Public Use
  Company Number: US-MERCK-0510USA04348

PATIENT
  Age: 76 Year
  Sex: Female
  Weight: 64 kg

DRUGS (5)
  1. VIOXX [Suspect]
     Indication: ARTHRITIS
     Route: 048
     Dates: start: 20000101, end: 20040101
  2. COUMADIN [Concomitant]
     Route: 065
  3. PRILOSEC [Concomitant]
     Route: 048
  4. XANAX [Concomitant]
     Route: 065
  5. DARVOCET-N 50 [Concomitant]
     Route: 065

REACTIONS (9)
  - CARDIAC DISORDER [None]
  - CONVULSION [None]
  - DIZZINESS [None]
  - FALL [None]
  - HEADACHE [None]
  - ISCHAEMIC STROKE [None]
  - OVERDOSE [None]
  - TRANSIENT ISCHAEMIC ATTACK [None]
  - VERTIGO [None]
